FAERS Safety Report 5612473-7 (Version None)
Quarter: 2008Q1

REPORT INFORMATION
  Report Type: 
  Country: None (occurrence: None)
  Receive Date: 20080131
  Receipt Date: 20080131
  Transmission Date: 20080703
  Serious: Yes (Other)
  Sender: FDA-Public Use
  Company Number: None

PATIENT
  Age: 52 Year
  Sex: Male
  Weight: 79.3795 kg

DRUGS (1)
  1. ZICAM [Suspect]
     Indication: NASOPHARYNGITIS
     Dosage: A SQUIRT OR TWO ONCE AT ONSET NASAL OCCASIONAL, FALL 2007
     Route: 045

REACTIONS (2)
  - ANOSMIA [None]
  - DYSGEUSIA [None]
